FAERS Safety Report 20195838 (Version 4)
Quarter: 2022Q2

REPORT INFORMATION
  Report Type: Report from Study
  Country: US (occurrence: US)
  Receive Date: 20211216
  Receipt Date: 20220621
  Transmission Date: 20220721
  Serious: Yes (Other)
  Sender: FDA-Public Use
  Company Number: US-NOVARTISTESTPH-NVSC2021US284559

PATIENT
  Age: 77 Year
  Sex: Female

DRUGS (1)
  1. ENTRESTO [Suspect]
     Active Substance: SACUBITRIL\VALSARTAN
     Indication: Product used for unknown indication
     Dosage: 200 MG, BID (97/103 MG)
     Route: 048
     Dates: start: 2019

REACTIONS (3)
  - Renal impairment [Not Recovered/Not Resolved]
  - Arthralgia [Recovering/Resolving]
  - Weight decreased [Unknown]

NARRATIVE: CASE EVENT DATE: 20211001
